FAERS Safety Report 11752376 (Version 1)
Quarter: 2015Q4

REPORT INFORMATION
  Report Type: Spontaneous
  Country: US (occurrence: US)
  Receive Date: 20151118
  Receipt Date: 20151118
  Transmission Date: 20160304
  Serious: No
  Sender: FDA-Public Use
  Company Number: US-009507513-1511USA006657

PATIENT

DRUGS (1)
  1. ASMANEX HFA [Suspect]
     Active Substance: MOMETASONE FUROATE
     Dosage: STRENGTH: 220 UNITS NOT PROVIDED
     Route: 055

REACTIONS (3)
  - No adverse event [Unknown]
  - Product dosage form issue [Unknown]
  - Drug dose omission [Unknown]
